FAERS Safety Report 17555265 (Version 6)
Quarter: 2023Q1

REPORT INFORMATION
  Report Type: Spontaneous
  Country: FR (occurrence: FR)
  Receive Date: 20200318
  Receipt Date: 20230111
  Transmission Date: 20230417
  Serious: Yes (Hospitalization)
  Sender: FDA-Public Use
  Company Number: None

PATIENT

DRUGS (3)
  1. DICLOFENAC [Suspect]
     Active Substance: DICLOFENAC
     Indication: Back pain
     Dosage: UNK
     Route: 048
     Dates: start: 20200201, end: 20200207
  2. NIFLUMIC ACID [Suspect]
     Active Substance: NIFLUMIC ACID
     Indication: Back pain
     Dosage: UNK
     Route: 048
     Dates: start: 20200207, end: 20200214
  3. KETOPROFEN [Suspect]
     Active Substance: KETOPROFEN
     Indication: Back pain
     Dosage: UNK
     Route: 048
     Dates: start: 20200124, end: 20200131

REACTIONS (3)
  - Rash maculo-papular [Recovering/Resolving]
  - Pruritus [Recovering/Resolving]
  - Oedema [Recovering/Resolving]

NARRATIVE: CASE EVENT DATE: 20200214
